FAERS Safety Report 19989706 (Version 2)
Quarter: 2021Q4

REPORT INFORMATION
  Report Type: Spontaneous
  Country: CZ (occurrence: CZ)
  Receive Date: 20211025
  Receipt Date: 20211028
  Transmission Date: 20220304
  Serious: Yes (Hospitalization, Other)
  Sender: FDA-Public Use
  Company Number: CZ-KOREA IPSEN PHARMA-2021-25727

PATIENT
  Age: 74 Year
  Sex: Female

DRUGS (17)
  1. LANREOTIDE ACETATE [Suspect]
     Active Substance: LANREOTIDE ACETATE
     Indication: Paraneoplastic nephrotic syndrome
     Route: 058
     Dates: start: 202005
  2. LANREOTIDE ACETATE [Suspect]
     Active Substance: LANREOTIDE ACETATE
     Indication: Off label use
  3. AFINITOR [Suspect]
     Active Substance: EVEROLIMUS
     Indication: Disease progression
     Dosage: EVERY OTHER DAY, LAST 14 DAYS 1X EVERY 32 DAYS
     Dates: start: 202010, end: 202102
  4. AFINITOR [Suspect]
     Active Substance: EVEROLIMUS
     Dosage: EVERY OTHER DAY
     Dates: start: 202107
  5. FUROSEMIDE [Concomitant]
     Active Substance: FUROSEMIDE
     Dosage: 40 MG, 1-1-0
  6. PERINDOPRIL ARGININE [Concomitant]
     Active Substance: PERINDOPRIL ARGININE
  7. BISOPROLOL FUMARATE [Concomitant]
     Active Substance: BISOPROLOL FUMARATE
     Dosage: 1-0-0
  8. LERCANIDIPINE HYDROCHLORIDE [Concomitant]
     Active Substance: LERCANIDIPINE HYDROCHLORIDE
     Dosage: 0-0-1
  9. ATORVASTATIN [Concomitant]
     Active Substance: ATORVASTATIN
     Dosage: 0-0-1
  10. CALCIUM CARBONATE [Concomitant]
     Active Substance: CALCIUM CARBONATE
     Dosage: 500/400, 0-0-1
  11. VESICARE [Concomitant]
     Active Substance: SOLIFENACIN SUCCINATE
     Dosage: 0-0-1
  12. SPIRONOLACTONE [Concomitant]
     Active Substance: SPIRONOLACTONE
     Dosage: 0-1-0
  13. URSODIOL [Concomitant]
     Active Substance: URSODIOL
     Dosage: 0-0-2
  14. VIGANTOL [Concomitant]
     Dosage: 14 GTT/ WEEK
  15. OMEPRAZOLE [Concomitant]
     Active Substance: OMEPRAZOLE
     Dosage: 1-0-0
  16. NADROPARIN CALCIUM [Concomitant]
     Active Substance: NADROPARIN CALCIUM
     Dosage: 0,4 ML/24 HOD
     Route: 058
  17. INDAPAMIDE\PERINDOPRIL ARGININE [Concomitant]
     Active Substance: INDAPAMIDE\PERINDOPRIL ARGININE
     Indication: Oedema peripheral
     Dosage: 10/2.5MG TBL RECOMMENDATION TO RESTRICT LIQUIDS 1-1.5 PER 1/DAY
     Dates: start: 201912

REACTIONS (9)
  - Anaemia [Recovered/Resolved]
  - Depressed level of consciousness [Recovering/Resolving]
  - Tachypnoea [Recovering/Resolving]
  - Pyrexia [Recovering/Resolving]
  - Pneumonia [Recovering/Resolving]
  - Disease progression [Unknown]
  - Urinary tract infection [Unknown]
  - Disease progression [Unknown]
  - Off label use [Unknown]

NARRATIVE: CASE EVENT DATE: 20200501
